FAERS Safety Report 14157647 (Version 1)
Quarter: 2017Q4

REPORT INFORMATION
  Report Type: Spontaneous
  Country: DE (occurrence: DE)
  Receive Date: 20171103
  Receipt Date: 20171103
  Transmission Date: 20180321
  Serious: Yes (Hospitalization, Other)
  Sender: FDA-Public Use
  Company Number: DE-TEVA-820101GER

PATIENT
  Age: 31 Year
  Sex: Female

DRUGS (1)
  1. COPAXONE [Suspect]
     Active Substance: GLATIRAMER ACETATE
     Indication: MULTIPLE SCLEROSIS
     Dates: start: 20151123, end: 201710

REACTIONS (2)
  - Multiple sclerosis relapse [Unknown]
  - Sensory disturbance [Not Recovered/Not Resolved]

NARRATIVE: CASE EVENT DATE: 201607
